FAERS Safety Report 24667319 (Version 2)
Quarter: 2024Q4

REPORT INFORMATION
  Report Type: Other
  Country: US (occurrence: US)
  Receive Date: 20241126
  Receipt Date: 20241211
  Transmission Date: 20250115
  Serious: No
  Sender: SUNOVION
  Company Number: US-SMPA-2024SPA005428AA

PATIENT

DRUGS (1)
  1. ORGOVYX [Suspect]
     Active Substance: RELUGOLIX
     Indication: Stress urinary incontinence
     Dosage: 120 MG, QD (TAKE 1 TABLET (120 MG) BY MOUTH ONCE DAILY AROUND THE SAME TIME EACH DAY AFTER THE FIRST
     Route: 048

REACTIONS (1)
  - Off label use [Unknown]
